FAERS Safety Report 18316468 (Version 1)
Quarter: 2020Q3

REPORT INFORMATION
  Report Type: Other
  Country: US (occurrence: US)
  Receive Date: 20200927
  Receipt Date: 20200927
  Transmission Date: 20201103
  Serious: Yes (Other)
  Sender: FDA-Public Use
  Company Number: US-ROCHE-2681075

PATIENT
  Age: 54 Year
  Sex: Female
  Weight: 77.18 kg

DRUGS (15)
  1. CRANBERRY + VITAMIN C [Concomitant]
     Dosage: YES
     Route: 048
     Dates: start: 201912
  2. METHENAMINE HIPPURATE. [Concomitant]
     Active Substance: METHENAMINE HIPPURATE
     Indication: CYSTITIS
     Dosage: NO
     Route: 048
     Dates: start: 201912, end: 202005
  3. L?GLUTATHIONE [Concomitant]
     Active Substance: GLUTATHIONE
     Dosage: YES
     Route: 048
     Dates: start: 201806
  4. ESTRADIOL. [Concomitant]
     Active Substance: ESTRADIOL
     Indication: ATROPHIC VULVOVAGINITIS
     Dosage: APPLIED VAGINAL AND URINARY MEATUS ;ONGOING: YES
     Route: 061
     Dates: start: 201908
  5. OCREVUS [Suspect]
     Active Substance: OCRELIZUMAB
     Indication: MULTIPLE SCLEROSIS RELAPSE
     Dosage: ONGOING: YES
     Route: 042
     Dates: start: 20180827
  6. METOPROLOL SUCCINATE. [Concomitant]
     Active Substance: METOPROLOL SUCCINATE
     Indication: HYPERTENSION
     Dosage: YES
     Route: 048
     Dates: start: 2006
  7. METHENAMINE HIPPURATE. [Concomitant]
     Active Substance: METHENAMINE HIPPURATE
     Dosage: YES
     Route: 048
     Dates: start: 20200822
  8. FLORAJEN 3 [Concomitant]
     Active Substance: PROBIOTICS NOS
     Dosage: YES
     Route: 048
  9. VITAMIN D3 [Concomitant]
     Active Substance: CHOLECALCIFEROL
     Indication: VITAMIN D DECREASED
     Dosage: YES
     Route: 048
  10. TESTOSTERONE. [Concomitant]
     Active Substance: TESTOSTERONE
     Indication: BLOOD TESTOSTERONE DECREASED
     Dosage: CREME?1 MG PER GM HRT APPLIED TO ARM ;ONGOING: YES
     Route: 061
     Dates: start: 201912
  11. BONE STRENGTH [Concomitant]
     Dosage: 2 TABLETS PER DOSE ;ONGOING: YES
     Route: 048
     Dates: start: 2019
  12. DALFAMPRIDINE. [Concomitant]
     Active Substance: DALFAMPRIDINE
     Dosage: YES?DALFAMPRIDINE ER
     Route: 048
     Dates: start: 202007
  13. CITALOPRAM [Concomitant]
     Active Substance: CITALOPRAM HYDROBROMIDE
     Indication: DEPRESSION
     Dosage: YES
     Route: 048
     Dates: start: 201808
  14. NAC (UNITED STATES) [Concomitant]
     Indication: MULTIPLE SCLEROSIS
     Dosage: YES
     Route: 048
     Dates: start: 201806
  15. OCREVUS [Suspect]
     Active Substance: OCRELIZUMAB
     Dosage: 1 VIAL ON DAY 1 AND DAY 15
     Route: 042

REACTIONS (6)
  - Osteopenia [Not Recovered/Not Resolved]
  - Gait disturbance [Not Recovered/Not Resolved]
  - Vitamin B12 decreased [Unknown]
  - Alopecia [Recovered/Resolved]
  - Blood testosterone decreased [Recovered/Resolved]
  - Cystitis [Recovered/Resolved]

NARRATIVE: CASE EVENT DATE: 201810
